FAERS Safety Report 6644245-9 (Version None)
Quarter: 2010Q1

REPORT INFORMATION
  Report Type: 
  Country: None (occurrence: None)
  Receive Date: 20100304
  Receipt Date: 20090327
  Transmission Date: 20100710
  Serious: Yes (Other)
  Sender: FDA-Public Use
  Company Number: US-002704

PATIENT
  Age: 22 Year
  Sex: Male

DRUGS (4)
  1. ISOVUE-300 [Suspect]
     Indication: COMPUTERISED TOMOGRAM ABDOMEN
     Dosage: 100ML QD INTRAVENOUS
     Route: 042
     Dates: start: 20090324, end: 20090324
  2. ISOVUE-300 [Suspect]
     Indication: PANCREATIC PSEUDOCYST
     Dosage: 100ML QD INTRAVENOUS
     Route: 042
     Dates: start: 20090324, end: 20090324
  3. VANCOMYCIN [Suspect]
     Dosage: 1X/8 HOURS INTRAVENOUS, 1X/8 HOURS INTRAVENOUS
     Route: 042
     Dates: start: 20090324, end: 20090325
  4. VANCOMYCIN [Suspect]
     Dosage: 1X/8 HOURS INTRAVENOUS, 1X/8 HOURS INTRAVENOUS
     Route: 042
     Dates: start: 20090325, end: 20090326

REACTIONS (1)
  - BLOOD CREATININE INCREASED [None]
